FAERS Safety Report 4771190-6 (Version None)
Quarter: 2005Q3

REPORT INFORMATION
  Report Type: 
  Country: None (occurrence: None)
  Receive Date: 20050914
  Receipt Date: 20050824
  Transmission Date: 20060218
  Serious: No
  Sender: FDA-Public Use
  Company Number: USA0508106429

PATIENT
  Age: 37 Year
  Sex: Female

DRUGS (3)
  1. CYMBALTA [Suspect]
     Indication: DISEASE RECURRENCE
     Dosage: 60 MG
     Dates: start: 20050711
  2. CYMBALTA [Suspect]
     Indication: MAJOR DEPRESSION
     Dosage: 60 MG
     Dates: start: 20050711
  3. PROZAC [Concomitant]

REACTIONS (1)
  - LIVER FUNCTION TEST ABNORMAL [None]
